FAERS Safety Report 6935849-4 (Version None)
Quarter: 2010Q3

REPORT INFORMATION
  Report Type: 
  Country: None (occurrence: None)
  Receive Date: 20100816
  Receipt Date: 20090623
  Transmission Date: 20110219
  Serious: No
  Sender: FDA-Public Use
  Company Number: 2009-00169

PATIENT
  Age: 12 Year
  Sex: Male
  Weight: 51.7101 kg

DRUGS (2)
  1. ZICAM COLD REMEDY GEL SWABS [Suspect]
     Dosage: QD
     Dates: start: 20090301
  2. CHILDREN'S MULTI-VITAMIN [Concomitant]

REACTIONS (2)
  - ANOSMIA [None]
  - NASAL CONGESTION [None]
